FAERS Safety Report 4801230-7 (Version None)
Quarter: 2005Q4

REPORT INFORMATION
  Report Type: 
  Country: None (occurrence: None)
  Receive Date: 20051011
  Receipt Date: 20050929
  Transmission Date: 20060501
  Serious: Yes (Life-Threatening, Hospitalization, Other)
  Sender: FDA-Public Use
  Company Number: CO-2005-020394

PATIENT
  Age: 34 Year
  Sex: Female
  Weight: 62 kg

DRUGS (1)
  1. YASMIN [Suspect]
     Indication: ORAL CONTRACEPTION
     Dosage: 1 TAB(S), 1X/DAY, ORAL
     Route: 048
     Dates: start: 20030101, end: 20050724

REACTIONS (8)
  - CHOLELITHIASIS [None]
  - DIARRHOEA [None]
  - GASTRITIS [None]
  - GENERALISED OEDEMA [None]
  - HEADACHE [None]
  - HYPOTENSION [None]
  - PANCREATITIS [None]
  - WEIGHT INCREASED [None]
